FAERS Safety Report 21342641 (Version 1)
Quarter: 2022Q3

REPORT INFORMATION
  Report Type: Report from Study
  Country: US (occurrence: None)
  Receive Date: 20220916
  Receipt Date: 20220916
  Transmission Date: 20221027
  Serious: Yes (Hospitalization)
  Sender: FDA-Public Use
  Company Number: US-ROCHE-3176223

PATIENT
  Age: 61 Year
  Sex: Female

DRUGS (2)
  1. ATEZOLIZUMAB [Suspect]
     Active Substance: ATEZOLIZUMAB
     Indication: Bile duct cancer
     Dosage: ON 14/MAR/2022, MOST RECENT DOSE
     Route: 041
     Dates: start: 20220131
  2. VARLILUMAB [Suspect]
     Active Substance: VARLILUMAB
     Indication: Bile duct cancer
     Dosage: ON 14/MAR/2022, MOST RECENT DOSE
     Route: 042
     Dates: start: 20220131

REACTIONS (1)
  - Sepsis [Unknown]

NARRATIVE: CASE EVENT DATE: 20220326
